FAERS Safety Report 21556224 (Version 5)
Quarter: 2022Q4

REPORT INFORMATION
  Report Type: Report from Study
  Country: CA (occurrence: CA)
  Receive Date: 20221104
  Receipt Date: 20221221
  Transmission Date: 20230112
  Serious: Yes (Other)
  Sender: FDA-Public Use
  Company Number: CA-JNJFOC-20221106742

PATIENT
  Age: 70 Year
  Sex: Male
  Weight: 69 kg

DRUGS (3)
  1. REMICADE [Suspect]
     Active Substance: INFLIXIMAB
     Indication: Colitis ulcerative
     Route: 042
     Dates: start: 20221014
  2. REMICADE [Suspect]
     Active Substance: INFLIXIMAB
     Route: 042
     Dates: start: 20221101
  3. REMICADE [Suspect]
     Active Substance: INFLIXIMAB
     Dosage: 10 MG/KG SECOND LOADING DOSE. LAST DOSE WAS RECEIVED ON 29-NOV-2022?300 MG TOP UP TO 400 MG DOSE
     Route: 042

REACTIONS (8)
  - Haematochezia [Unknown]
  - Rectal haemorrhage [Unknown]
  - Anaemia [Not Recovered/Not Resolved]
  - COVID-19 [Unknown]
  - Peripheral swelling [Not Recovered/Not Resolved]
  - Muscular weakness [Not Recovered/Not Resolved]
  - Frequent bowel movements [Unknown]
  - Night sweats [Not Recovered/Not Resolved]

NARRATIVE: CASE EVENT DATE: 20220101
